FAERS Safety Report 7986693-0 (Version None)
Quarter: 2011Q4

REPORT INFORMATION
  Report Type: 
  Country: None (occurrence: None)
  Receive Date: 20111216
  Receipt Date: 20110811
  Transmission Date: 20120403
  Serious: No
  Sender: FDA-Public Use
  Company Number: US-BRISTOL-MYERS SQUIBB COMPANY-15967375

PATIENT
  Sex: Female

DRUGS (3)
  1. XANAX [Suspect]
  2. ABILIFY [Suspect]
     Indication: BIPOLAR DISORDER
  3. NUVARING [Suspect]

REACTIONS (1)
  - DRUG INEFFECTIVE [None]
